FAERS Safety Report 9159431 (Version 1)
Quarter: 2013Q1

REPORT INFORMATION
  Report Type: Spontaneous
  Country: US (occurrence: US)
  Receive Date: 20130313
  Receipt Date: 20130313
  Transmission Date: 20140127
  Serious: No
  Sender: FDA-Public Use
  Company Number: PHEH2013US005792

PATIENT
  Age: 52 Year
  Sex: Female

DRUGS (3)
  1. TASIGNA [Suspect]
     Indication: CHRONIC MYELOID LEUKAEMIA
     Dosage: 150 MG, Q12H
     Route: 048
     Dates: start: 20121019
  2. FLUOXETINE [Interacting]
  3. ADDERALL [Interacting]

REACTIONS (1)
  - Feeling jittery [Not Recovered/Not Resolved]
